FAERS Safety Report 6764797-8 (Version None)
Quarter: 2010Q2

REPORT INFORMATION
  Report Type: 
  Country: None (occurrence: None)
  Receive Date: 20100609
  Receipt Date: 20100510
  Transmission Date: 20101027
  Serious: No
  Sender: FDA-Public Use
  Company Number: 2010011462

PATIENT
  Age: 5 Year
  Sex: Female
  Weight: 18.5975 kg

DRUGS (1)
  1. CHILDREN'S ZYRTEC ALLERGY [Suspect]
     Indication: RASH
     Dosage: 1/2 - 1 TSP ONCE DAILY, ORAL
     Route: 048
     Dates: end: 20100507

REACTIONS (5)
  - EYE SWELLING [None]
  - OFF LABEL USE [None]
  - PRODUCT QUALITY ISSUE [None]
  - PRURITUS [None]
  - SWELLING FACE [None]
